FAERS Safety Report 9158788 (Version 1)
Quarter: 2013Q1

REPORT INFORMATION
  Report Type: Spontaneous
  Country: US (occurrence: US)
  Receive Date: 20130225
  Receipt Date: 20130225
  Transmission Date: 20140127
  Serious: Yes (Hospitalization, Other)
  Sender: FDA-Public Use
  Company Number: US-RB-049719-13

PATIENT
  Age: 32 Year
  Sex: Female

DRUGS (4)
  1. SUBOXONE TABLETS [Suspect]
     Indication: DRUG DEPENDENCE
     Route: 060
     Dates: start: 200901, end: 201004
  2. SUBOXONE TABLETS [Suspect]
     Dosage: 8MG ONE DAY, 4 MG NEXT DAY
     Route: 060
     Dates: start: 201012
  3. REMERON [Concomitant]
     Indication: PRODUCT USED FOR UNKNOWN INDICATION
     Dosage: DOSING DETAILS UNKNOWN
     Route: 065
  4. PRISTIQ [Concomitant]
     Indication: PRODUCT USED FOR UNKNOWN INDICATION
     Dosage: DOSING DETAILS UNKNOWN
     Route: 065

REACTIONS (3)
  - Wrong technique in drug usage process [Not Recovered/Not Resolved]
  - Breast cancer [Not Recovered/Not Resolved]
  - Pain [Not Recovered/Not Resolved]
